FAERS Safety Report 8046575-5 (Version None)
Quarter: 2012Q1

REPORT INFORMATION
  Report Type: 
  Country: None (occurrence: None)
  Receive Date: 20120113
  Receipt Date: 20120104
  Transmission Date: 20120608
  Serious: Yes (Hospitalization)
  Sender: FDA-Public Use
  Company Number: FR-ASTRAZENECA-2012SE01360

PATIENT
  Age: 62 Year
  Sex: Female

DRUGS (5)
  1. CRESTOR [Suspect]
     Route: 048
     Dates: start: 20101109
  2. MYFORTIC [Suspect]
     Route: 048
     Dates: start: 20070912
  3. RAPAMUNE [Suspect]
     Route: 048
     Dates: start: 20090317, end: 20111118
  4. LEVOTHYROXINE SODIUM [Suspect]
     Route: 048
  5. PROPRANOLOL [Suspect]
     Route: 048

REACTIONS (1)
  - INTERSTITIAL LUNG DISEASE [None]
